FAERS Safety Report 9190492 (Version 2)
Quarter: 2013Q3

REPORT INFORMATION
  Report Type: Spontaneous
  Country: US (occurrence: US)
  Receive Date: 20130326
  Receipt Date: 20130702
  Transmission Date: 20140515
  Serious: Yes (Hospitalization)
  Sender: FDA-Public Use
  Company Number: US-PFIZER INC-2013093833

PATIENT
  Sex: Male

DRUGS (5)
  1. LIPITOR [Suspect]
     Dosage: UNK
  2. CARDURA [Suspect]
     Dosage: UNK
  3. GLUCOTROL XL [Suspect]
     Dosage: UNK
  4. ACCUPRIL [Suspect]
     Dosage: UNK
  5. ZOLOFT [Suspect]
     Dosage: UNK

REACTIONS (3)
  - Hypertension [Unknown]
  - Ulcer [Unknown]
  - Back disorder [Unknown]
